FAERS Safety Report 5304511-6 (Version None)
Quarter: 2007Q2

REPORT INFORMATION
  Report Type: 
  Country: None (occurrence: None)
  Receive Date: 20070423
  Receipt Date: 20070411
  Transmission Date: 20071010
  Serious: Yes (Hospitalization)
  Sender: FDA-Public Use
  Company Number: US-AMGEN-STX184510

PATIENT
  Sex: Female

DRUGS (6)
  1. ENBREL [Suspect]
     Indication: JUVENILE ARTHRITIS
     Route: 058
     Dates: start: 20040115
  2. PLAQUENIL [Concomitant]
     Dates: start: 19770101
  3. METHOTREXATE [Concomitant]
     Dates: start: 20040101
  4. CELEBREX [Concomitant]
     Route: 048
  5. ZYRTEC [Concomitant]
     Route: 048
  6. CENTRUM SILVER [Concomitant]

REACTIONS (2)
  - BAKER'S CYST EXCISION [None]
  - BRONCHITIS [None]
